FAERS Safety Report 7494499-4 (Version None)
Quarter: 2011Q2

REPORT INFORMATION
  Report Type: 
  Country: None (occurrence: None)
  Receive Date: 20110520
  Receipt Date: 20110506
  Transmission Date: 20111010
  Serious: Yes (Other)
  Sender: FDA-Public Use
  Company Number: PHHY2011CA27021

PATIENT

DRUGS (3)
  1. NAPROXEN [Concomitant]
  2. ALISKIREN [Suspect]
     Dosage: 150 MG, UNK
  3. SYNTHROID [Concomitant]

REACTIONS (2)
  - BLOOD PRESSURE DIASTOLIC DECREASED [None]
  - PRESYNCOPE [None]
